FAERS Safety Report 8762524 (Version 2)
Quarter: 2012Q4

REPORT INFORMATION
  Report Type: 
  Country: US (occurrence: US)
  Receive Date: 20120828
  Receipt Date: 20120920
  Transmission Date: 20130627
  Serious: No
  Sender: FDA-Public Use
  Company Number: US-PFIZER INC-2012207252

PATIENT
  Age: 68 Year
  Sex: Female
  Weight: 68.48 kg

DRUGS (8)
  1. AZITHROMYCIN [Suspect]
     Indication: HORDEOLUM
     Dosage: UNK, as needed
     Dates: start: 2009
  2. AZITHROMYCIN [Suspect]
     Dosage: 250 mg, 2x/day
     Dates: start: 20120821, end: 201208
  3. LIPITOR [Suspect]
     Indication: BLOOD CHOLESTEROL INCREASED
     Dosage: 20 mg, daily
  4. TRIHEXYPHENIDYL [Concomitant]
     Indication: TORTICOLLIS
     Dosage: 5 mg, 2x/day
  5. NEXIUM [Concomitant]
     Indication: DYSPEPSIA
     Dosage: 40 mg, UNK
  6. LISINOPRIL [Concomitant]
     Dosage: 20 (no units provided); UNK
  7. HCTZ [Concomitant]
     Dosage: 25 mg, UNK
  8. ALPRAZOLAM [Concomitant]
     Dosage: UNK

REACTIONS (5)
  - Burning sensation [Recovered/Resolved]
  - Palpitations [Recovered/Resolved]
  - Myalgia [Recovering/Resolving]
  - Hypersensitivity [Unknown]
  - Feeling abnormal [Unknown]
